FAERS Safety Report 12195203 (Version 1)
Quarter: 2016Q1

REPORT INFORMATION
  Report Type: Spontaneous
  Country: US (occurrence: US)
  Receive Date: 20160321
  Receipt Date: 20160321
  Transmission Date: 20160526
  Serious: No
  Sender: FDA-Public Use
  Company Number: US-TEVA-569642USA

PATIENT
  Sex: Female

DRUGS (1)
  1. NORTRIPTYLINE [Suspect]
     Active Substance: NORTRIPTYLINE
     Indication: HEADACHE
     Dosage: 150 MILLIGRAM DAILY;
     Route: 065

REACTIONS (4)
  - Lack of spontaneous speech [Unknown]
  - Product use issue [Unknown]
  - Drug level increased [Unknown]
  - Off label use [Unknown]
